FAERS Safety Report 9995105 (Version 1)
Quarter: 2014Q1

REPORT INFORMATION
  Report Type: Spontaneous
  Country: IT (occurrence: None)
  Receive Date: 20140307
  Receipt Date: 20140307
  Transmission Date: 20141002
  Serious: Yes (Disabling)
  Sender: FDA-Public Use
  Company Number: None

PATIENT
  Age: 72 Year
  Sex: Female

DRUGS (12)
  1. LANSOPRAZOLE [Suspect]
     Indication: GASTRITIS
     Route: 048
     Dates: start: 20120708, end: 20120808
  2. ALOE VERA [Suspect]
  3. UNSPECIFIED INGREDIENTS [Suspect]
  4. UNSPECIFIED INGREDIENTS [Suspect]
  5. UNSPECIFIED INGREDIENTS [Suspect]
  6. UNSPECIFIED INGREDIENTS [Suspect]
  7. UNSPECIFIED INGREDIENTS [Suspect]
  8. SULFUR [Suspect]
  9. UNSPECIFIED INGREDIENTS [Suspect]
  10. LYCOPODIUM CLAVATUM [Suspect]
  11. UNSPECIFIED INGREDIENTS [Suspect]
  12. PHOSPHORUS [Suspect]

REACTIONS (4)
  - Muscle strain [None]
  - Abdominal distension [None]
  - Local swelling [None]
  - Joint swelling [None]
